FAERS Safety Report 10517378 (Version 1)
Quarter: 2014Q4

REPORT INFORMATION
  Report Type: Report from Study
  Country: PH (occurrence: PH)
  Receive Date: 20141014
  Receipt Date: 20141014
  Transmission Date: 20150528
  Serious: Yes (Other)
  Sender: FDA-Public Use
  Company Number: PHHY2014PH130495

PATIENT
  Age: 43 Year
  Sex: Female

DRUGS (2)
  1. TASIGNA [Suspect]
     Active Substance: NILOTINIB
     Dosage: UNK UKN, UNK
     Route: 065
  2. TASIGNA [Suspect]
     Active Substance: NILOTINIB
     Indication: CHRONIC MYELOID LEUKAEMIA
     Dosage: 300 MG, BID
     Route: 048
     Dates: start: 20140901, end: 20141003

REACTIONS (3)
  - Myalgia [Unknown]
  - Sweat gland tumour [Recovered/Resolved with Sequelae]
  - Skin lesion [Unknown]

NARRATIVE: CASE EVENT DATE: 20140901
